FAERS Safety Report 5915976-0 (Version None)
Quarter: 2008Q4

REPORT INFORMATION
  Report Type: 
  Country: None (occurrence: None)
  Receive Date: 20081013
  Receipt Date: 20081001
  Transmission Date: 20090506
  Serious: Yes (Other)
  Sender: FDA-Public Use
  Company Number: FR-JNJFOC-20080800076

PATIENT
  Age: 77 Year
  Sex: Female
  Weight: 64 kg

DRUGS (9)
  1. REMICADE [Suspect]
     Indication: RHEUMATOID ARTHRITIS
     Dosage: TOTAL # INFUSIONS: 6
     Route: 042
  2. ARAVA [Suspect]
     Indication: RHEUMATOID ARTHRITIS
  3. CATAPRESSAN [Concomitant]
     Route: 048
  4. NOVATREX [Concomitant]
     Indication: RHEUMATOID ARTHRITIS
     Route: 048
  5. SPECIAFOLDINE [Concomitant]
     Route: 048
  6. FOLIC ACID [Concomitant]
  7. FELODIPINE [Concomitant]
     Route: 048
  8. LEVOTHYROXINE SODIUM [Concomitant]
     Route: 048
  9. DI-ANTALVIC [Concomitant]
     Indication: ANALGESIA
     Route: 048

REACTIONS (7)
  - AGGRESSION [None]
  - ALOPECIA [None]
  - ALOPECIA AREATA [None]
  - DEPRESSION [None]
  - EYE IRRITATION [None]
  - HEADACHE [None]
  - ORAL DISCOMFORT [None]
